FAERS Safety Report 22532108 (Version 1)
Quarter: 2023Q2

REPORT INFORMATION
  Report Type: Report from Study
  Country: ES (occurrence: ES)
  Receive Date: 20230607
  Receipt Date: 20230607
  Transmission Date: 20230722
  Serious: Yes (Life-Threatening, Hospitalization)
  Sender: FDA-Public Use
  Company Number: ES-002147023-NVSC2023ES124674

PATIENT
  Age: 54 Year
  Sex: Male
  Weight: 88 kg

DRUGS (17)
  1. RAMIPRIL [Suspect]
     Active Substance: RAMIPRIL
     Indication: Cardiovascular disorder
     Dosage: UNK
     Route: 065
     Dates: start: 20171106
  2. RAMIPRIL [Suspect]
     Active Substance: RAMIPRIL
     Dosage: 105 MG (42 TABLETS OF 2.5MG)
     Route: 065
  3. INVESTIGATIONAL PRODUCT [Suspect]
     Active Substance: INVESTIGATIONAL PRODUCT
     Indication: Cardiovascular disorder
     Dosage: CODE NOT BROKEN
     Route: 058
     Dates: start: 20211116
  4. PLACEBO [Suspect]
     Active Substance: UNSPECIFIED INGREDIENT
     Indication: Cardiovascular disorder
     Dosage: CODE NOT BROKEN
     Route: 058
     Dates: start: 20211116
  5. PELACARSEN [Suspect]
     Active Substance: PELACARSEN
     Indication: Cardiovascular disorder
     Dosage: CODE NOT BROKEN
     Route: 058
     Dates: start: 20211116
  6. DIAZEPAM [Suspect]
     Active Substance: DIAZEPAM
     Indication: Depression
     Dosage: UNK
     Route: 065
     Dates: start: 20221221
  7. DIAZEPAM [Suspect]
     Active Substance: DIAZEPAM
     Dosage: 225 MG  (45 TABLETS OF 5MG)
     Route: 065
  8. ASPIRIN [Concomitant]
     Active Substance: ASPIRIN
     Indication: Cardiovascular disorder
     Dosage: UNK
     Route: 065
     Dates: start: 20021001
  9. CARVEDILOL [Concomitant]
     Active Substance: CARVEDILOL
     Indication: Cardiovascular disorder
     Dosage: UNK
     Route: 065
     Dates: start: 20131122
  10. COLESEVELAM HYDROCHLORIDE [Concomitant]
     Active Substance: COLESEVELAM HYDROCHLORIDE
     Indication: Cardiovascular disorder
     Dosage: UNK
     Route: 065
     Dates: start: 20140602
  11. ALIROCUMAB [Concomitant]
     Active Substance: ALIROCUMAB
     Indication: Type IIa hyperlipidaemia
     Dosage: UNK
     Route: 065
     Dates: start: 20160812
  12. OMEPRAZOLE [Concomitant]
     Active Substance: OMEPRAZOLE
     Indication: General physical condition
     Dosage: UNK
     Route: 065
     Dates: start: 20180102
  13. EZETIMIBE [Concomitant]
     Active Substance: EZETIMIBE
     Indication: Cardiovascular disorder
     Dosage: UNK
     Route: 065
     Dates: start: 20180705
  14. ROSUVASTATIN [Concomitant]
     Active Substance: ROSUVASTATIN
     Indication: Cardiovascular disorder
     Dosage: UNK
     Route: 065
     Dates: start: 20180705
  15. TIOTROPIUM [Concomitant]
     Active Substance: TIOTROPIUM
     Indication: Upper respiratory tract infection
     Dosage: UNK
     Route: 065
     Dates: start: 20211214
  16. METAMIZOL [Concomitant]
     Active Substance: METAMIZOLE SODIUM
     Indication: General physical condition
     Dosage: UNK
     Route: 065
     Dates: start: 20221212
  17. RANOLAZINE [Concomitant]
     Active Substance: RANOLAZINE
     Indication: Cardiovascular disorder
     Dosage: UNK
     Route: 065
     Dates: start: 20221217

REACTIONS (1)
  - Suicide attempt [Recovered/Resolved]

NARRATIVE: CASE EVENT DATE: 20230519
